FAERS Safety Report 8565058-7 (Version None)
Quarter: 2012Q3

REPORT INFORMATION
  Report Type: 
  Country: None (occurrence: None)
  Receive Date: 20120803
  Receipt Date: 20120731
  Transmission Date: 20120928
  Serious: No
  Sender: FDA-Public Use
  Company Number: US-PFIZER INC-2012186011

PATIENT
  Sex: Female
  Weight: 67 kg

DRUGS (7)
  1. LISINOPRIL [Concomitant]
     Indication: HYPERTENSION
     Dosage: 20 MG, (DAILY)
  2. NEURONTIN [Suspect]
     Indication: HERPES ZOSTER
     Dosage: 100 MG, 1X/DAY
     Dates: start: 20120701, end: 20120701
  3. OMEPRAZOLE [Concomitant]
     Indication: GASTROOESOPHAGEAL REFLUX DISEASE
     Dosage: 20 MG, 2X/DAY
  4. TYLENOL (CAPLET) [Concomitant]
     Indication: HERPES ZOSTER
     Dosage: UNK
  5. PLAVIX [Concomitant]
     Indication: CARDIAC DISORDER
     Dosage: 75 MG, (DAILY)
  6. ASPIRIN [Concomitant]
     Indication: ANTICOAGULANT THERAPY
     Dosage: 81 MG, (DAILY)
  7. ATENOLOL [Concomitant]
     Indication: CARDIAC DISORDER
     Dosage: 25 MG, (DAILY)

REACTIONS (2)
  - DIZZINESS [None]
  - HEADACHE [None]
